FAERS Safety Report 23655724 (Version 1)
Quarter: 2024Q1

REPORT INFORMATION
  Report Type: Spontaneous
  Country: US (occurrence: US)
  Receive Date: 20240321
  Receipt Date: 20240321
  Transmission Date: 20240409
  Serious: No
  Sender: FDA-Public Use
  Company Number: US-JNJFOC-20240351490

PATIENT
  Sex: Male

DRUGS (2)
  1. DARZALEX [Suspect]
     Active Substance: DARATUMUMAB
     Indication: Product used for unknown indication
     Dosage: 3 VIALS OF DARZALEX 400MG AND 3 VIALS OF DARZALEX 100MG WERE USED
     Route: 065
  2. DARZALEX [Suspect]
     Active Substance: DARATUMUMAB
     Dosage: 3 VIALS OF DARZALEX 400MG AND 3 VIALS OF DARZALEX 100MG WERE USED
     Route: 065

REACTIONS (2)
  - Product preparation error [Unknown]
  - Product dose omission issue [Unknown]
